FAERS Safety Report 7788216-8 (Version None)
Quarter: 2011Q3

REPORT INFORMATION
  Report Type: 
  Country: None (occurrence: None)
  Receive Date: 20110927
  Receipt Date: 20110913
  Transmission Date: 20111222
  Serious: Yes (Hospitalization, Other)
  Sender: FDA-Public Use
  Company Number: 2011MA013461

PATIENT
  Age: 79 Year
  Sex: Male

DRUGS (3)
  1. CANDESARTAN CILEXETIL [Concomitant]
  2. PENTOXIFYLLINE [Suspect]
     Indication: PERIPHERAL ARTERIAL OCCLUSIVE DISEASE
     Dosage: 400 MG;QD
  3. CLOPIDOGREL [Suspect]
     Indication: PERIPHERAL ARTERIAL OCCLUSIVE DISEASE
     Dosage: 75 MG;QD;

REACTIONS (5)
  - PURPURA [None]
  - BLOOD PRESSURE INCREASED [None]
  - PETECHIAE [None]
  - THROMBOCYTOPENIA [None]
  - BIOPSY BONE MARROW ABNORMAL [None]
